FAERS Safety Report 4885925-5 (Version None)
Quarter: 2006Q1

REPORT INFORMATION
  Report Type: 
  Country: None (occurrence: None)
  Receive Date: 20060117
  Receipt Date: 20060103
  Transmission Date: 20060701
  Serious: Yes (Life-Threatening, Hospitalization, Disabling)
  Sender: FDA-Public Use
  Company Number: GXKR2006NL00467

PATIENT
  Sex: Male

DRUGS (3)
  1. IBUPROFEN [Suspect]
     Dosage: 600 MG, TID, ORAL
     Route: 048
     Dates: start: 19990212
  2. LIPITOR [Suspect]
     Dosage: 10 MG, QD, ORAL
     Route: 048
     Dates: start: 19990203
  3. TRANXENE [Suspect]
     Dosage: 10 MG, BID
     Dates: start: 19990212

REACTIONS (3)
  - MYALGIA [None]
  - PYREXIA [None]
  - URINE COLOUR ABNORMAL [None]
